FAERS Safety Report 7908648-4 (Version None)
Quarter: 2011Q4

REPORT INFORMATION
  Report Type: 
  Country: None (occurrence: None)
  Receive Date: 20111111
  Receipt Date: 20111101
  Transmission Date: 20120403
  Serious: Yes (Other)
  Sender: FDA-Public Use
  Company Number: PHHY2011US07413

PATIENT
  Sex: Female
  Weight: 77 kg

DRUGS (11)
  1. WARFARIN SODIUM [Concomitant]
  2. SENOKOT [Concomitant]
  3. ETHYLENE GLYCOL [Concomitant]
  4. POTASSIUM [Concomitant]
  5. EXJADE [Suspect]
     Indication: IRON METABOLISM DISORDER
     Dosage: 1000 MG, DAILY
     Route: 048
     Dates: start: 20090301, end: 20110501
  6. POLYETHYLENE GLYCOL [Concomitant]
  7. VERAPAMIL [Concomitant]
  8. MIRALAX [Concomitant]
  9. MAGNESIUM CITRATE [Concomitant]
  10. BENICAR [Concomitant]
  11. FOLIC ACID [Concomitant]

REACTIONS (7)
  - RHINORRHOEA [None]
  - SEASONAL ALLERGY [None]
  - FOOT FRACTURE [None]
  - HEADACHE [None]
  - FUNCTIONAL GASTROINTESTINAL DISORDER [None]
  - BRONCHITIS [None]
  - CONSTIPATION [None]
